FAERS Safety Report 8521333-3 (Version None)
Quarter: 2012Q3

REPORT INFORMATION
  Report Type: 
  Country: None (occurrence: None)
  Receive Date: 20120712
  Receipt Date: 20120712
  Transmission Date: 20120928
  Serious: Yes (Life-Threatening, Hospitalization)
  Sender: FDA-Public Use
  Company Number: None

PATIENT
  Age: 16 Year
  Sex: Male
  Weight: 115.8 kg

DRUGS (2)
  1. ULTIVA [Suspect]
     Indication: ANAESTHESIA
     Dosage: ONCE IV  { 1 HOUR
     Route: 042
     Dates: start: 20120702, end: 20120702
  2. DIPRIVAN [Suspect]
     Indication: ANAESTHESIA
     Dosage: ONCE IV  { 1 HOUR
     Route: 042
     Dates: start: 20120702, end: 20120702

REACTIONS (1)
  - CARDIAC ARREST [None]
